FAERS Safety Report 10445215 (Version 1)
Quarter: 2014Q3

REPORT INFORMATION
  Report Type: Spontaneous
  Country: IT (occurrence: IT)
  Receive Date: 20140910
  Receipt Date: 20140910
  Transmission Date: 20150326
  Serious: Yes (Other)
  Sender: FDA-Public Use
  Company Number: PHHY2014IT111956

PATIENT
  Age: 18 Year
  Sex: Male

DRUGS (3)
  1. CLOBETASOL PROPIONATE. [Suspect]
     Active Substance: CLOBETASOL PROPIONATE
     Indication: SCLERODERMA
     Route: 061
  2. CORTICOSTEROIDS FOR SYSTEMIC USE [Concomitant]
     Active Substance: UNSPECIFIED INGREDIENT
     Indication: SCLERODERMA
  3. METHOTREXATE [Concomitant]
     Active Substance: METHOTREXATE
     Indication: SCLERODERMA

REACTIONS (2)
  - Skin hypopigmentation [Unknown]
  - Becker^s naevus [Unknown]
